FAERS Safety Report 9393142 (Version 2)
Quarter: 2013Q3

REPORT INFORMATION
  Report Type: Spontaneous
  Country: JP (occurrence: JP)
  Receive Date: 20130710
  Receipt Date: 20130722
  Transmission Date: 20140515
  Serious: Yes (Other)
  Sender: FDA-Public Use
  Company Number: JP-ELI_LILLY_AND_COMPANY-JP201306005208

PATIENT
  Age: 81 Year
  Sex: Female

DRUGS (6)
  1. CYMBALTA [Suspect]
     Indication: DEPRESSION
     Dosage: 40 MG, QD
     Route: 048
     Dates: start: 20130430, end: 20130610
  2. TERNELIN [Suspect]
     Dosage: UNK
     Dates: end: 20130610
  3. MAGMITT [Suspect]
     Dosage: UNK
     Dates: end: 20130610
  4. ARICEPT [Suspect]
     Dosage: UNK
     Route: 048
     Dates: end: 20130610
  5. AMLODIN [Concomitant]
     Dosage: UNK
     Route: 048
  6. NATRIX [Concomitant]
     Dosage: UNK

REACTIONS (4)
  - Hepatic function abnormal [Recovered/Resolved]
  - Aspartate aminotransferase increased [Recovered/Resolved]
  - Alanine aminotransferase increased [Recovered/Resolved]
  - Blood lactate dehydrogenase increased [Recovered/Resolved]
